FAERS Safety Report 10069118 (Version 2)
Quarter: 2014Q2

REPORT INFORMATION
  Report Type: Report from Study
  Country: US (occurrence: US)
  Receive Date: 20140409
  Receipt Date: 20140415
  Transmission Date: 20141212
  Serious: Yes (Hospitalization, Other)
  Sender: FDA-Public Use
  Company Number: PHEH2014US006947

PATIENT
  Sex: Female

DRUGS (9)
  1. EXELON PATCH [Suspect]
     Indication: DEMENTIA ALZHEIMER^S TYPE
     Dosage: 9.6 MG/24 HOURS
     Route: 062
     Dates: start: 20130905, end: 20130926
  2. EXELON PATCH [Suspect]
     Dosage: UNK UKN, INCREASING DOSE
     Route: 062
  3. RENVELA [Concomitant]
     Indication: DIALYSIS
     Dosage: 800 MG, QD
     Route: 048
  4. ZOCOR [Concomitant]
     Indication: BLOOD CHOLESTEROL
     Dosage: 20 MG, QD
     Route: 048
  5. ASA [Concomitant]
     Dosage: 81 MG, QD
     Route: 048
  6. RISPERIDONE [Concomitant]
     Indication: PSYCHOTIC DISORDER
     Dosage: 1 MG, TID
     Route: 048
     Dates: start: 20130702
  7. AMLODIPINE [Concomitant]
     Dosage: 10 MG, QD
  8. COZAAR [Concomitant]
     Dosage: 100 MG, QD
  9. CEFACLOR [Concomitant]
     Dosage: 500 MG, BID

REACTIONS (5)
  - Malnutrition [Unknown]
  - Hypophagia [Unknown]
  - Thrombosis [Unknown]
  - Melaena [Unknown]
  - Diarrhoea [Unknown]
